FAERS Safety Report 7059581-4 (Version None)
Quarter: 2010Q4

REPORT INFORMATION
  Report Type: 
  Country: None (occurrence: None)
  Receive Date: 20101025
  Receipt Date: 20101019
  Transmission Date: 20110411
  Serious: Yes (Other)
  Sender: FDA-Public Use
  Company Number: PHHY2010CN70110

PATIENT
  Age: 13 Year
  Sex: Male

DRUGS (1)
  1. LAMISIL [Suspect]
     Indication: FUNGAL INFECTION
     Dosage: 1 TABLET A DAY
     Route: 048
     Dates: start: 20100808, end: 20100815

REACTIONS (1)
  - APLASTIC ANAEMIA [None]
